FAERS Safety Report 10164115 (Version 1)
Quarter: 2014Q2

REPORT INFORMATION
  Report Type: Spontaneous
  Country: US (occurrence: US)
  Receive Date: 20140510
  Receipt Date: 20140510
  Transmission Date: 20141212
  Serious: No
  Sender: FDA-Public Use
  Company Number: US-BRISTOL-MYERS SQUIBB COMPANY-19950203

PATIENT
  Age: 52 Year
  Sex: Male
  Weight: 105.21 kg

DRUGS (23)
  1. BYETTA PEN DISPOSABLE [Suspect]
  2. GLYBURIDE [Concomitant]
  3. PRASUGREL [Concomitant]
  4. LANTUS [Concomitant]
  5. METFORMIN [Concomitant]
  6. GLIMEPIRIDE [Concomitant]
  7. NIASPAN [Concomitant]
  8. SIMVASTATIN [Concomitant]
  9. POTASSIUM IODIDE [Concomitant]
     Dosage: 1DF:1-4 DROPS WITH WATER
  10. LISINOPRIL [Concomitant]
  11. COQ10 [Concomitant]
  12. FISH OIL [Concomitant]
  13. ISOSORBIDE MONONITRATE [Concomitant]
  14. ASPIRIN [Concomitant]
  15. METOPROLOL TARTRATE [Concomitant]
  16. PANTOPRAZOLE [Concomitant]
  17. HYDROCHLOROTHIAZIDE [Concomitant]
  18. ARMOUR THYROID [Concomitant]
  19. DHEA [Concomitant]
  20. VITAMIN D [Concomitant]
  21. MULTIVITAMIN [Concomitant]
  22. VITAMIN B COMPLEX [Concomitant]
  23. PRILOSEC [Concomitant]

REACTIONS (3)
  - Injection site haemorrhage [Unknown]
  - Product quality issue [Unknown]
  - Dyspepsia [Unknown]
